FAERS Safety Report 6307614-2 (Version None)
Quarter: 2009Q3

REPORT INFORMATION
  Report Type: 
  Country: None (occurrence: None)
  Receive Date: 20090812
  Receipt Date: 20090812
  Transmission Date: 20100115
  Serious: Yes (Hospitalization)
  Sender: FDA-Public Use
  Company Number: None

PATIENT
  Age: 60 Year
  Sex: Male
  Weight: 97 kg

DRUGS (1)
  1. METHOCARBAMOL [Suspect]
     Indication: MUSCLE RELAXANT THERAPY
     Dosage: 1000 MG TID PO
     Route: 048
     Dates: start: 20080304, end: 20090804

REACTIONS (2)
  - LOSS OF CONSCIOUSNESS [None]
  - SOMNOLENCE [None]
